FAERS Safety Report 10409366 (Version 1)
Quarter: 2014Q3

REPORT INFORMATION
  Report Type: Spontaneous
  Country: US (occurrence: None)
  Receive Date: 20140825
  Receipt Date: 20140825
  Transmission Date: 20150326
  Serious: No
  Sender: FDA-Public Use
  Company Number: None

PATIENT
  Age: 58 Year
  Sex: Female
  Weight: 65.77 kg

DRUGS (1)
  1. ATENOLOL. [Suspect]
     Active Substance: ATENOLOL
     Indication: HYPERTENSION
     Dosage: 1  AT BEDTIME TAKEN BY MOUTH
     Route: 048
     Dates: start: 20140819, end: 20140820

REACTIONS (7)
  - Feeling cold [None]
  - Drug hypersensitivity [None]
  - Hyperhidrosis [None]
  - Loss of consciousness [None]
  - Activities of daily living impaired [None]
  - Memory impairment [None]
  - Faecal incontinence [None]

NARRATIVE: CASE EVENT DATE: 20140819
